FAERS Safety Report 21890876 (Version 1)
Quarter: 2023Q1

REPORT INFORMATION
  Report Type: Spontaneous
  Country: NL (occurrence: None)
  Receive Date: 20230120
  Receipt Date: 20230120
  Transmission Date: 20230418
  Serious: Yes (Hospitalization)
  Sender: FDA-Public Use
  Company Number: 2023A009015

PATIENT
  Sex: Male
  Weight: 98 kg

DRUGS (3)
  1. DAPAGLIFLOZIN [Interacting]
     Active Substance: DAPAGLIFLOZIN
     Indication: Type 2 diabetes mellitus
     Dosage: 1 X PER DAY 1 PIECE
     Route: 048
     Dates: start: 20220202, end: 20220531
  2. LITHIUM [Interacting]
     Active Substance: LITHIUM
     Indication: Psychotic disorder
     Dosage: 2.5 TABLETS ONCE A DAY
     Route: 065
     Dates: start: 20110506
  3. NORTRIPTYLINE [Concomitant]
     Active Substance: NORTRIPTYLINE
     Dosage: TABLET, 50 MG (MILLIGRAM)

REACTIONS (2)
  - Drug interaction [Recovered/Resolved]
  - Toxicity to various agents [Recovered/Resolved]
